FAERS Safety Report 7657292-5 (Version None)
Quarter: 2011Q3

REPORT INFORMATION
  Report Type: 
  Country: None (occurrence: None)
  Receive Date: 20110804
  Receipt Date: 20110726
  Transmission Date: 20111222
  Serious: Yes (Hospitalization)
  Sender: FDA-Public Use
  Company Number: PHHY2011US68713

PATIENT
  Sex: Male

DRUGS (3)
  1. TOBI [Suspect]
     Indication: CYSTIC FIBROSIS
     Dosage: 300 MG, BID
  2. PULMOZYME [Concomitant]
  3. ADVAIR DISKUS 100/50 [Concomitant]

REACTIONS (4)
  - FATIGUE [None]
  - MALAISE [None]
  - PYREXIA [None]
  - SEPSIS [None]
